FAERS Safety Report 11710809 (Version 1)
Quarter: 2015Q4

REPORT INFORMATION
  Report Type: Spontaneous
  Country: US (occurrence: US)
  Receive Date: 20151104
  Receipt Date: 20151104
  Transmission Date: 20160304
  Serious: No
  Sender: FDA-Public Use
  Company Number: US-ELI_LILLY_AND_COMPANY-US201103008778

PATIENT
  Age: 85 Year
  Sex: Female

DRUGS (1)
  1. FORTEO [Suspect]
     Active Substance: TERIPARATIDE
     Indication: OSTEOPOROSIS
     Dosage: UNK, UNKNOWN
     Dates: start: 20110313

REACTIONS (16)
  - Temporomandibular joint syndrome [Not Recovered/Not Resolved]
  - Musculoskeletal pain [Recovered/Resolved]
  - Malaise [Recovered/Resolved]
  - Intentional product misuse [Recovered/Resolved]
  - Gastrointestinal disorder [Recovered/Resolved]
  - Neck pain [Recovered/Resolved]
  - Fatigue [Recovered/Resolved]
  - Arthralgia [Recovered/Resolved]
  - Dry throat [Recovered/Resolved]
  - Abdominal pain upper [Recovered/Resolved]
  - Pain in jaw [Recovered/Resolved]
  - Intentional product misuse [Unknown]
  - Somnolence [Recovered/Resolved]
  - Headache [Recovered/Resolved]
  - Dry mouth [Recovered/Resolved]
  - Pain in extremity [Recovered/Resolved]

NARRATIVE: CASE EVENT DATE: 201103
